FAERS Safety Report 24040335 (Version 1)
Quarter: 2024Q3

REPORT INFORMATION
  Report Type: Spontaneous
  Country: US (occurrence: US)
  Receive Date: 20240702
  Receipt Date: 20240702
  Transmission Date: 20241017
  Serious: Yes (Other)
  Sender: ABBVIE
  Company Number: US-ABBVIE-5821683

PATIENT

DRUGS (1)
  1. NAMENDA XR [Suspect]
     Active Substance: MEMANTINE HYDROCHLORIDE
     Indication: Product used for unknown indication
     Dosage: 28 MILLIGRAM
     Route: 048

REACTIONS (4)
  - Suicidal ideation [Unknown]
  - Drug hypersensitivity [Unknown]
  - Memory impairment [Unknown]
  - Diarrhoea [Unknown]
